FAERS Safety Report 6734709-1 (Version None)
Quarter: 2010Q2

REPORT INFORMATION
  Report Type: 
  Country: None (occurrence: None)
  Receive Date: 20100519
  Receipt Date: 20100519
  Transmission Date: 20101027
  Serious: Yes (Other)
  Sender: FDA-Public Use
  Company Number: None

PATIENT
  Age: 55 Year
  Sex: Female
  Weight: 88.4514 kg

DRUGS (1)
  1. CRESTOR [Suspect]
     Indication: LOW DENSITY LIPOPROTEIN INCREASED
     Dosage: 1 TABLET ONCE A DAY/BEDTIME PO
     Route: 048
     Dates: start: 20100317, end: 20100328

REACTIONS (3)
  - ABASIA [None]
  - ECONOMIC PROBLEM [None]
  - PAIN [None]
